FAERS Safety Report 18095865 (Version 1)
Quarter: 2020Q3

REPORT INFORMATION
  Report Type: Spontaneous
  Country: US (occurrence: US)
  Receive Date: 20200731
  Receipt Date: 20200731
  Transmission Date: 20201103
  Serious: Yes (Hospitalization)
  Sender: FDA-Public Use
  Company Number: US-AUROBINDO-AUR-APL-2020-036543

PATIENT
  Sex: Male

DRUGS (38)
  1. ACETAMINOPHEN. [Suspect]
     Active Substance: ACETAMINOPHEN
     Indication: NEURALGIA
     Dosage: 650 MILLIGRAM, FOUR TIMES/DAY (ADMINISTERED AS A COCKTAIL)
     Route: 065
  2. GABAPENTIN. [Suspect]
     Active Substance: GABAPENTIN
     Indication: NEURALGIA
  3. LEVETIRACETAM. [Suspect]
     Active Substance: LEVETIRACETAM
     Indication: NEURALGIA
  4. HYDROCODONE BITARTRATE AND ACETAMINOPHEN [Suspect]
     Active Substance: ACETAMINOPHEN\HYDROCODONE BITARTRATE
     Indication: PROCEDURAL PAIN
     Dosage: UNK
     Route: 065
  5. TRAMADOL. [Suspect]
     Active Substance: TRAMADOL
     Indication: PAIN
     Dosage: 50 MILLIGRAM
     Route: 065
  6. MAGNESIUM [Suspect]
     Active Substance: MAGNESIUM
     Indication: NEURALGIA
  7. OXCARBAMAZEPINE [Suspect]
     Active Substance: OXCARBAZEPINE
     Indication: NEURALGIA
     Dosage: 300 MILLIGRAM, TWO TIMES A DAY (FOR 2 WEEKS)
     Route: 065
  8. DIPHENHYDRAMINE. [Suspect]
     Active Substance: DIPHENHYDRAMINE
     Indication: NEURALGIA
     Dosage: 12.5 MILLIGRAM (ADMINISTERED AS A COCKTAIL)
     Route: 065
  9. HYDROCODONE BITARTRATE AND ACETAMINOPHEN [Suspect]
     Active Substance: ACETAMINOPHEN\HYDROCODONE BITARTRATE
     Indication: NEURALGIA
  10. METHOCARBAMOL. [Suspect]
     Active Substance: METHOCARBAMOL
     Indication: PROCEDURAL PAIN
     Dosage: 500 MILLIGRAM, 3 TIMES A DAY (AS NEEDED FOR 1 MONTH)
     Route: 065
  11. MORPHINE [Suspect]
     Active Substance: MORPHINE
     Indication: NEURALGIA
  12. PREDNISONE. [Suspect]
     Active Substance: PREDNISONE
     Indication: PROCEDURAL PAIN
     Dosage: 60 MILLIGRAM, ONCE A DAY (FOR 3 DAYS)
     Route: 065
  13. PREGABALIN. [Suspect]
     Active Substance: PREGABALIN
     Indication: NEURALGIA
  14. NORTRIPTYLINE [Concomitant]
     Active Substance: NORTRIPTYLINE
     Indication: NEURALGIA
  15. GABAPENTIN. [Suspect]
     Active Substance: GABAPENTIN
     Indication: PROCEDURAL PAIN
     Dosage: 600 MILLIGRAM, 3 TIMES A DAY (FOR GREATER THAN 1 MONTH)
     Route: 065
  16. INDOMETHACIN. [Suspect]
     Active Substance: INDOMETHACIN
     Indication: PROCEDURAL PAIN
     Dosage: 25 MILLIGRAM, 3 TIMES A DAY (FOR 40 DAYS)
     Route: 065
  17. TRAMADOL. [Suspect]
     Active Substance: TRAMADOL
     Indication: NEURALGIA
  18. LIDOPROFEN [Suspect]
     Active Substance: KETAMINE\KETOPROFEN\LIDOCAINE
     Indication: NEURALGIA
  19. PREGABALIN. [Suspect]
     Active Substance: PREGABALIN
     Indication: PROCEDURAL PAIN
     Dosage: 100 MILLIGRAM, ONCE A DAY (FOR 3 MONTHS)
     Route: 065
  20. NORTRIPTYLINE [Concomitant]
     Active Substance: NORTRIPTYLINE
     Indication: PAIN
     Dosage: 10 MILLIGRAM (AT BEDTIME)
     Route: 065
  21. INDOMETHACIN. [Suspect]
     Active Substance: INDOMETHACIN
     Indication: NEURALGIA
  22. LIDOCAINE HYDROCHLORIDE INJECTION USP 2%(20MG/ML) [Suspect]
     Active Substance: LIDOCAINE HYDROCHLORIDE
     Indication: NEURALGIA
  23. ONDANSETRON [Suspect]
     Active Substance: ONDANSETRON
     Dosage: 4 MILLIGRAM (ADMINISTERED AS A COCKTAIL)
     Route: 065
  24. KETAMINE [Suspect]
     Active Substance: KETAMINE
     Indication: PROCEDURAL PAIN
     Dosage: UNK
     Route: 042
  25. KETAMINE [Suspect]
     Active Substance: KETAMINE
     Indication: NEURALGIA
  26. MORPHINE [Suspect]
     Active Substance: MORPHINE
     Indication: PAIN
     Dosage: 4 MILLIGRAM
     Route: 065
  27. MAGNESIUM [Suspect]
     Active Substance: MAGNESIUM
     Indication: PAIN
     Dosage: 2 GRAM
     Route: 065
  28. NUBAIN [Suspect]
     Active Substance: NALBUPHINE HYDROCHLORIDE
     Indication: PROCEDURAL PAIN
     Dosage: 1 DOSAGE FORM, ONCE A DAY
     Route: 065
  29. PREDNISONE. [Suspect]
     Active Substance: PREDNISONE
     Indication: NEURALGIA
  30. METHOCARBAMOL. [Suspect]
     Active Substance: METHOCARBAMOL
     Indication: NEURALGIA
  31. ONDANSETRON [Suspect]
     Active Substance: ONDANSETRON
     Indication: NAUSEA
     Dosage: 4 MILLIGRAM
     Route: 065
  32. LIDOPROFEN [Suspect]
     Active Substance: KETAMINE\KETOPROFEN\LIDOCAINE
     Indication: PROCEDURAL PAIN
     Dosage: UNK, DAILY (AS NEEDED)
     Route: 061
  33. NUBAIN [Suspect]
     Active Substance: NALBUPHINE HYDROCHLORIDE
     Indication: NEURALGIA
  34. OXCARBAMAZEPINE [Suspect]
     Active Substance: OXCARBAZEPINE
     Indication: PROCEDURAL PAIN
     Dosage: 150 MILLIGRAM, TWO TIMES A DAY (FOR 2 WEEKS)
     Route: 065
  35. CYCLOBENZAPRINE. [Suspect]
     Active Substance: CYCLOBENZAPRINE
     Indication: NEURALGIA
     Dosage: 10 MILLIGRAM
     Route: 065
  36. LIDOCAINE HYDROCHLORIDE INJECTION USP 2%(20MG/ML) [Suspect]
     Active Substance: LIDOCAINE HYDROCHLORIDE
     Indication: PROCEDURAL PAIN
     Dosage: 2 PERCENT, ONCE A DAY
     Route: 065
  37. LEVETIRACETAM. [Suspect]
     Active Substance: LEVETIRACETAM
     Indication: PROCEDURAL PAIN
     Dosage: 500 MILLIGRAM, 3 TIMES A DAY (FOR 40 DAYS)
     Route: 065
  38. METHYLPREDNISOLONE. [Suspect]
     Active Substance: METHYLPREDNISOLONE
     Indication: PRODUCT USED FOR UNKNOWN INDICATION
     Dosage: 1 GRAM
     Route: 065

REACTIONS (2)
  - Product use in unapproved indication [Unknown]
  - Drug ineffective [Unknown]
